FAERS Safety Report 11104505 (Version 2)
Quarter: 2015Q2

REPORT INFORMATION
  Report Type: Report from Study
  Country: CA (occurrence: CA)
  Receive Date: 20150511
  Receipt Date: 20150520
  Transmission Date: 20150821
  Serious: Yes (Death)
  Sender: FDA-Public Use
  Company Number: CA-ABBVIE-15P-028-1388120-00

PATIENT
  Sex: Male

DRUGS (2)
  1. RIBAVIRIN. [Suspect]
     Active Substance: RIBAVIRIN
     Indication: PRODUCT USED FOR UNKNOWN INDICATION
     Route: 048
     Dates: start: 20150305
  2. HOLKIRA PAK [Suspect]
     Active Substance: DASABUVIR\OMBITASVIR\PARITAPREVIR\RITONAVIR
     Indication: HEPATITIS C
     Dosage: 1 WEEK TREATEMENT PACK 12.5/75/50MG TABLETS ONCE DAILY; DASABUVIR 250MG TABLET TWICE DAILY
     Route: 048
     Dates: start: 20150305

REACTIONS (4)
  - Death [Fatal]
  - Renal failure [Fatal]
  - Drug ineffective [Not Recovered/Not Resolved]
  - Hepatic failure [Fatal]
